FAERS Safety Report 16189181 (Version 1)
Quarter: 2019Q2

REPORT INFORMATION
  Report Type: Spontaneous
  Country: US (occurrence: US)
  Receive Date: 20190411
  Receipt Date: 20190411
  Transmission Date: 20190711
  Serious: No
  Sender: FDA-Public Use
  Company Number: None

PATIENT
  Age: 5 Year
  Sex: Female
  Weight: 29.25 kg

DRUGS (2)
  1. OSELTAMIVIR PHOSPHATE FOR ORAL SUSPENSION [Suspect]
     Active Substance: OSELTAMIVIR PHOSPHATE
     Indication: H1N1 INFLUENZA
     Dosage: ?          QUANTITY:10 ML;?
     Route: 048
     Dates: start: 20190409, end: 20190411
  2. PREDNISOLONE. [Concomitant]
     Active Substance: PREDNISOLONE

REACTIONS (5)
  - Irritability [None]
  - Aggression [None]
  - Abnormal behaviour [None]
  - Mood altered [None]
  - Inappropriate affect [None]

NARRATIVE: CASE EVENT DATE: 20190411
